FAERS Safety Report 6238789-1 (Version None)
Quarter: 2009Q2

REPORT INFORMATION
  Report Type: 
  Country: None (occurrence: None)
  Receive Date: 20090622
  Receipt Date: 20090616
  Transmission Date: 20091009
  Serious: Yes (Hospitalization)
  Sender: FDA-Public Use
  Company Number: HU-WATSON-2009-04535

PATIENT
  Age: 39 Year
  Sex: Male

DRUGS (4)
  1. DICLOFENAC (WATSON LABORATORIES) [Suspect]
     Indication: INTERVERTEBRAL DISC PROTRUSION
     Dosage: 75 MG DAILY
  2. MELOXICAM (WATSON LABORATORIES) [Suspect]
     Indication: INTERVERTEBRAL DISC PROTRUSION
     Dosage: 15 MG DAILY
  3. ASPIRIN [Suspect]
     Indication: ANTIPLATELET THERAPY
     Dosage: 100 MG DAILY
  4. CLOPIDOGREL [Suspect]
     Indication: ANTIPLATELET THERAPY
     Dosage: 75 MG DAILY

REACTIONS (2)
  - DRUG INTERACTION [None]
  - THROMBOSIS IN DEVICE [None]
